FAERS Safety Report 4822538-5 (Version None)
Quarter: 2005Q4

REPORT INFORMATION
  Report Type: 
  Country: None (occurrence: None)
  Receive Date: 20051108
  Receipt Date: 20020607
  Transmission Date: 20060501
  Serious: Yes (Life-Threatening, Hospitalization)
  Sender: FDA-Public Use
  Company Number: DE-AVENTIS-200211928EU

PATIENT
  Sex: Female
  Weight: 71 kg

DRUGS (6)
  1. RILUZOLE [Suspect]
     Indication: HUNTINGTON'S CHOREA
     Route: 048
     Dates: start: 20010328
  2. EFFORTIL PLUS [Concomitant]
     Route: 048
     Dates: start: 19950101
  3. ANTACID TAB [Concomitant]
     Route: 048
     Dates: start: 19950101
  4. FLUOXETINE HCL [Concomitant]
     Indication: DEPRESSION
     Route: 048
     Dates: start: 20010308, end: 20010914
  5. FLUOXETINE HCL [Concomitant]
     Route: 048
     Dates: start: 20020101, end: 20020301
  6. AMITRIPTYLINE HCL [Concomitant]
     Indication: DEPRESSION
     Dates: start: 20010915, end: 20020101

REACTIONS (2)
  - DEPRESSION [None]
  - SUICIDAL IDEATION [None]
